FAERS Safety Report 5756584-4 (Version None)
Quarter: 2008Q2

REPORT INFORMATION
  Report Type: 
  Country: None (occurrence: None)
  Receive Date: 20080528
  Receipt Date: 20080516
  Transmission Date: 20081010
  Serious: Yes (Hospitalization)
  Sender: FDA-Public Use
  Company Number: 2008SP009306

PATIENT
  Age: 61 Year
  Sex: Female
  Weight: 78.1 kg

DRUGS (9)
  1. TEMOZOLOMIDE [Suspect]
     Indication: COLON CANCER METASTATIC
  2. ALBUTEROL (CON.) [Concomitant]
  3. LOVENOX (CON.) [Concomitant]
  4. METOPROLOL (CON.) [Concomitant]
  5. NORCO (CON.) [Concomitant]
  6. K-DUR (CON.) [Concomitant]
  7. ZOFRAN (CON.) [Concomitant]
  8. COMPAZINE (CON.) [Concomitant]
  9. NORCO (CON.) [Concomitant]

REACTIONS (9)
  - ANOREXIA [None]
  - BACTERAEMIA [None]
  - BLOOD CULTURE POSITIVE [None]
  - DECREASED APPETITE [None]
  - DISEASE PROGRESSION [None]
  - NAUSEA [None]
  - PAIN [None]
  - PYREXIA [None]
  - STAPHYLOCOCCAL INFECTION [None]
